FAERS Safety Report 9391137 (Version 1)
Quarter: 2013Q3

REPORT INFORMATION
  Report Type: Spontaneous
  Country: US (occurrence: None)
  Receive Date: 20130705
  Receipt Date: 20130705
  Transmission Date: 20140515
  Serious: Yes (Hospitalization)
  Sender: FDA-Public Use
  Company Number: None

PATIENT
  Age: 56 Year
  Sex: Female

DRUGS (1)
  1. SUTENT [Suspect]
     Dosage: 37.5MG DAILY PO
     Route: 048
     Dates: start: 20130416

REACTIONS (3)
  - Stomatitis [None]
  - Metastases to central nervous system [None]
  - Medical device discomfort [None]
